FAERS Safety Report 17615106 (Version 3)
Quarter: 2021Q2

REPORT INFORMATION
  Report Type: Spontaneous
  Country: US (occurrence: US)
  Receive Date: 20200402
  Receipt Date: 20210514
  Transmission Date: 20210716
  Serious: Yes (Other)
  Sender: FDA-Public Use
  Company Number: US-PFIZER INC-2020135717

PATIENT
  Age: 50 Year
  Sex: Female

DRUGS (1)
  1. XELJANZ XR [Suspect]
     Active Substance: TOFACITINIB CITRATE
     Indication: RHEUMATOID ARTHRITIS
     Dosage: 11 MG, DAILY
     Route: 048
     Dates: start: 2019

REACTIONS (7)
  - Cross sensitivity reaction [Unknown]
  - Stress [Unknown]
  - Uterine leiomyoma [Recovering/Resolving]
  - Food allergy [Unknown]
  - Cystitis [Recovering/Resolving]
  - Sensitivity to weather change [Unknown]
  - Pain [Unknown]
